FAERS Safety Report 16568155 (Version 3)
Quarter: 2019Q3

REPORT INFORMATION
  Report Type: Spontaneous
  Country: FR (occurrence: FR)
  Receive Date: 20190712
  Receipt Date: 20190719
  Transmission Date: 20191004
  Serious: Yes (Death)
  Sender: FDA-Public Use
  Company Number: FR-PFIZER INC-2019300486

PATIENT
  Age: 55 Year
  Sex: Female

DRUGS (5)
  1. OXAZEPAM. [Suspect]
     Active Substance: OXAZEPAM
     Dosage: INCONNUE
     Route: 065
     Dates: start: 2018
  2. FLUOXETINE [Suspect]
     Active Substance: FLUOXETINE HYDROCHLORIDE
     Dosage: INCONNUE
     Route: 065
     Dates: start: 2018
  3. ATENOLOL. [Suspect]
     Active Substance: ATENOLOL
     Dosage: INCONNUE
     Route: 065
     Dates: start: 2018
  4. PREGABALINE PFIZER [Suspect]
     Active Substance: PREGABALIN
     Dosage: INCONNUE
     Route: 065
     Dates: start: 2018
  5. FENTANYL. [Suspect]
     Active Substance: FENTANYL
     Dosage: INCONNUE
     Route: 065
     Dates: start: 2018

REACTIONS (1)
  - Depressed level of consciousness [Fatal]

NARRATIVE: CASE EVENT DATE: 201801
